FAERS Safety Report 8097388-X (Version None)
Quarter: 2012Q1

REPORT INFORMATION
  Report Type: 
  Country: None (occurrence: None)
  Receive Date: 20120128
  Receipt Date: 20110803
  Transmission Date: 20120608
  Serious: No
  Sender: FDA-Public Use
  Company Number: US-ABBOTT-11P-163-0734544-00

PATIENT
  Age: 52 Year
  Sex: Male

DRUGS (6)
  1. METFORMIN HCL [Concomitant]
     Indication: DIABETES MELLITUS
  2. HUMIRA [Suspect]
     Dates: start: 20020101
  3. UNKNOWN THYROID MEDICATION [Concomitant]
     Indication: THYROID DISORDER
  4. HUMIRA [Suspect]
     Indication: PSORIASIS
  5. HUMIRA [Suspect]
     Dates: start: 20110501
  6. LISINOPRIL [Concomitant]
     Indication: HYPERTENSION

REACTIONS (8)
  - DRUG INEFFECTIVE [None]
  - LOWER RESPIRATORY TRACT INFECTION [None]
  - COUGH [None]
  - THYROID DISORDER [None]
  - DIABETES MELLITUS [None]
  - SINUS CONGESTION [None]
  - BLOOD PRESSURE INCREASED [None]
  - BRONCHITIS [None]
